FAERS Safety Report 24095988 (Version 1)
Quarter: 2024Q3

REPORT INFORMATION
  Report Type: Spontaneous
  Country: US (occurrence: US)
  Receive Date: 20240716
  Receipt Date: 20240716
  Transmission Date: 20241016
  Serious: No
  Sender: SANOFI AVENTIS
  Company Number: US-SANOFI-02126637

PATIENT
  Sex: Male

DRUGS (1)
  1. KEVZARA [Suspect]
     Active Substance: SARILUMAB
     Dosage: UNK
     Dates: start: 202404

REACTIONS (1)
  - SARS-CoV-2 test positive [Not Recovered/Not Resolved]

NARRATIVE: CASE EVENT DATE: 20240701
